FAERS Safety Report 18504729 (Version 1)
Quarter: 2020Q4

REPORT INFORMATION
  Report Type: Spontaneous
  Country: US (occurrence: US)
  Receive Date: 20201115
  Receipt Date: 20201115
  Transmission Date: 20210114
  Serious: No
  Sender: FDA-Public Use
  Company Number: US-ASTRAZENECA-2020SF48121

PATIENT
  Age: 24947 Day
  Sex: Male
  Weight: 98.9 kg

DRUGS (5)
  1. FASENRA [Suspect]
     Active Substance: BENRALIZUMAB
     Indication: ASTHMA
     Route: 058
     Dates: start: 20201001
  2. FASENRA [Suspect]
     Active Substance: BENRALIZUMAB
     Indication: CHRONIC OBSTRUCTIVE PULMONARY DISEASE
     Route: 058
     Dates: start: 20201001
  3. FASENRA [Suspect]
     Active Substance: BENRALIZUMAB
     Indication: BREATH SOUNDS
     Route: 058
     Dates: start: 20201001
  4. OXYGEN. [Concomitant]
     Active Substance: OXYGEN
  5. FASENRA [Suspect]
     Active Substance: BENRALIZUMAB
     Indication: PNEUMONIA
     Route: 058
     Dates: start: 20201001

REACTIONS (6)
  - Hypoaesthesia [Unknown]
  - Dysstasia [Unknown]
  - Pain [Not Recovered/Not Resolved]
  - Back pain [Not Recovered/Not Resolved]
  - Swelling [Unknown]
  - Inflammation [Unknown]

NARRATIVE: CASE EVENT DATE: 20201002
